FAERS Safety Report 6408279-1 (Version None)
Quarter: 2009Q4

REPORT INFORMATION
  Report Type: 
  Country: None (occurrence: None)
  Receive Date: 20091021
  Receipt Date: 20091008
  Transmission Date: 20100525
  Serious: Yes (Other)
  Sender: FDA-Public Use
  Company Number: SA-PFIZER INC-2009260733

PATIENT
  Age: 69 Year

DRUGS (3)
  1. LYRICA [Suspect]
     Indication: DIABETIC NEUROPATHY
     Dosage: 75 MG, UNK
     Route: 048
     Dates: start: 20090801, end: 20090801
  2. NEURONTIN [Suspect]
     Indication: DIABETIC NEUROPATHY
     Dosage: 300 MG, UNK
     Route: 048
     Dates: start: 20090801, end: 20090801
  3. TRYPTIZOL [Concomitant]
     Dosage: UNK

REACTIONS (2)
  - DIZZINESS [None]
  - PSYCHOTIC DISORDER [None]
